FAERS Safety Report 22782656 (Version 2)
Quarter: 2023Q4

REPORT INFORMATION
  Report Type: Spontaneous
  Country: US (occurrence: US)
  Receive Date: 20230803
  Receipt Date: 20231205
  Transmission Date: 20240110
  Serious: Yes (Hospitalization, Other)
  Sender: FDA-Public Use
  Company Number: US-BRISTOL-MYERS SQUIBB COMPANY-2023-108854

PATIENT
  Age: 75 Year
  Sex: Female

DRUGS (3)
  1. THALOMID [Suspect]
     Active Substance: THALIDOMIDE
     Indication: Arteriovenous fistula
     Dosage: DOSE : 50MG;     FREQ : ONCE DAILY AT BEDTIME
     Route: 048
     Dates: start: 20230503
  2. THALOMID [Suspect]
     Active Substance: THALIDOMIDE
     Indication: Arteritis
  3. THALOMID [Suspect]
     Active Substance: THALIDOMIDE
     Indication: Iron deficiency anaemia

REACTIONS (7)
  - Herpes zoster [Recovered/Resolved]
  - Fungal infection [Recovered/Resolved]
  - Sepsis [Recovering/Resolving]
  - Urinary tract infection [Recovering/Resolving]
  - Pneumonia [Recovering/Resolving]
  - Off label use [Unknown]
  - Limb injury [Unknown]

NARRATIVE: CASE EVENT DATE: 20230101
